FAERS Safety Report 23694081 (Version 1)
Quarter: 2024Q2

REPORT INFORMATION
  Report Type: Report from Study
  Country: GR (occurrence: GR)
  Receive Date: 20240401
  Receipt Date: 20240401
  Transmission Date: 20240716
  Serious: Yes (Other)
  Sender: FDA-Public Use
  Company Number: GR-AKCEA THERAPEUTICS, INC.-2024IS002855

PATIENT

DRUGS (15)
  1. TEGSEDI [Suspect]
     Active Substance: INOTERSEN SODIUM
     Indication: Hereditary neuropathic amyloidosis
     Dosage: 284 MILLIGRAM, QW
     Route: 058
     Dates: end: 20231109
  2. TEGSEDI [Suspect]
     Active Substance: INOTERSEN SODIUM
     Dosage: 284 MILLIGRAM, QW
     Route: 058
  3. TEGSEDI [Suspect]
     Active Substance: INOTERSEN SODIUM
     Dosage: 285 MILLIGRAM, QW
     Route: 058
     Dates: start: 20220924
  4. TEGSEDI [Suspect]
     Active Substance: INOTERSEN SODIUM
     Dosage: 284 MILLIGRAM, QW
     Route: 058
     Dates: start: 20210625
  5. NEXIUM [Concomitant]
     Active Substance: ESOMEPRAZOLE MAGNESIUM
     Indication: Gastroenteritis
     Dosage: 40 MG, QD
     Route: 048
     Dates: end: 20231129
  6. METOPROLOL TARTRATE [Concomitant]
     Active Substance: METOPROLOL TARTRATE
     Indication: Hypertension
     Dosage: 25 MG, BID
     Route: 048
     Dates: start: 1995
  7. SALUREX [Concomitant]
     Indication: Hypertension
     Dosage: 500 MILLIGRAM, 1/4 TWICE DAILY (WHEN NOT ON HEMODIALYSIS)
     Route: 048
     Dates: start: 1995, end: 20231129
  8. FOLIC ACID [Concomitant]
     Active Substance: FOLIC ACID
     Indication: Product used for unknown indication
     Dosage: 1 DOSAGE FORM (WHEN ON HEMODIALYSIS)
     Route: 048
     Dates: start: 2021
  9. ARIXTRA [Concomitant]
     Active Substance: FONDAPARINUX SODIUM
     Indication: Product used for unknown indication
     Dosage: 1.5 MG/ 0.3 ML, QD
     Route: 058
     Dates: start: 2021
  10. SEVELAMER/DEMO [Concomitant]
     Indication: Product used for unknown indication
     Dosage: 800 MG, QD
     Route: 065
  11. VITAMIN A [Concomitant]
     Active Substance: VITAMIN A
     Indication: Product used for unknown indication
     Dosage: UNK, QD
     Route: 065
     Dates: start: 202106
  12. HUMALOG [Concomitant]
     Active Substance: INSULIN LISPRO
     Indication: Diabetes mellitus
     Dosage: (6 UNITS-MORNING; 8 UNITS-AFTERNOON;WHEN ON HEMODIALYSIS-MORNING-SKIPPED), BID
     Route: 058
     Dates: start: 202101
  13. LANTUS [Concomitant]
     Active Substance: INSULIN GLARGINE
     Indication: Diabetes mellitus
     Dosage: 18 INTERNATIONAL UNIT, QD (AT NIGHT)
     Route: 058
     Dates: start: 202101
  14. NAPROXEN [Concomitant]
     Active Substance: NAPROXEN
     Indication: Product used for unknown indication
     Dosage: UNK
     Route: 065
  15. IBUPROFEN [Concomitant]
     Active Substance: IBUPROFEN
     Dosage: UNK
     Route: 065

REACTIONS (20)
  - Glomerular filtration rate decreased [Unknown]
  - Red blood cell count decreased [Not Recovered/Not Resolved]
  - Haematocrit decreased [Not Recovered/Not Resolved]
  - Haemoglobin decreased [Not Recovered/Not Resolved]
  - Mean cell haemoglobin increased [Recovered/Resolved]
  - Mean cell volume increased [Recovered/Resolved]
  - Mean platelet volume increased [Unknown]
  - Lymphocyte count decreased [Unknown]
  - White blood cell count increased [Unknown]
  - Mononuclear cell count increased [Recovered/Resolved]
  - Creatinine urine decreased [Unknown]
  - Leukocytosis [Unknown]
  - Red cell distribution width increased [Unknown]
  - Plateletcrit decreased [Recovered/Resolved]
  - Gamma-glutamyltransferase increased [Unknown]
  - Blood alkaline phosphatase increased [Unknown]
  - Aspartate aminotransferase increased [Unknown]
  - Alanine aminotransferase increased [Unknown]
  - Product supply issue [Recovered/Resolved]
  - Platelet count decreased [Recovered/Resolved]

NARRATIVE: CASE EVENT DATE: 20220531
